FAERS Safety Report 9009967 (Version 2)
Quarter: 2013Q1

REPORT INFORMATION
  Report Type: Report from Study
  Country: CH (occurrence: CH)
  Receive Date: 20130110
  Receipt Date: 20130115
  Transmission Date: 20140127
  Serious: Yes (Hospitalization)
  Sender: FDA-Public Use
  Company Number: CH-CELGENEUS-151-21880-13010169

PATIENT
  Age: 70 Year
  Sex: Male
  Weight: 73 kg

DRUGS (4)
  1. REVLIMID [Suspect]
     Indication: PLASMA CELL MYELOMA
     Route: 048
     Dates: start: 20121204, end: 20121225
  2. DEXAMETHASONE [Suspect]
     Indication: PLASMA CELL MYELOMA
     Route: 048
     Dates: start: 20121204, end: 20121218
  3. DEXAMETHASONE [Suspect]
     Route: 048
     Dates: start: 20121225
  4. BENDAMUSTINE [Suspect]
     Indication: PLASMA CELL MYELOMA
     Route: 041
     Dates: start: 20121204, end: 20121205

REACTIONS (1)
  - Anxiety [Not Recovered/Not Resolved]
